FAERS Safety Report 14537637 (Version 2)
Quarter: 2020Q4

REPORT INFORMATION
  Report Type: Spontaneous
  Country: US (occurrence: US)
  Receive Date: 20180215
  Receipt Date: 20201112
  Transmission Date: 20210113
  Serious: Yes (Disabling)
  Sender: FDA-Public Use
  Company Number: US-TEVA-2018-US-859969

PATIENT
  Age: 54 Year
  Sex: Female

DRUGS (35)
  1. DOCETAXEL ACTAVIS [Suspect]
     Active Substance: DOCETAXEL
     Indication: BREAST CANCER FEMALE
     Dosage: DOSAGE: 125 MILLIGRAMS, NUMBER OF CYCLES: 04; EVERY THREE WEEKS
     Route: 065
     Dates: start: 20130731, end: 20131002
  2. DEXAMETHASONE SODIUM PHOSPHATE. [Concomitant]
     Active Substance: DEXAMETHASONE SODIUM PHOSPHATE
     Dosage: 10MG/ML- 10MG INTRAVENOUSLY DAILY; INTERMITTENT OVER 20 MIN FOR 1 DAY IN NS 50ML
     Dates: start: 20130731, end: 20130731
  3. FAMOTIDINE. [Concomitant]
     Active Substance: FAMOTIDINE
     Dosage: IN NACL 20 MG/50ML-20MG INTRAVENOUSLY DAILY INTERMITTENT OVER 20 MINUTES FOR 1DAY IN NS 50ML
     Dates: start: 20130731, end: 20130731
  4. PALONOSETRON HCL [Concomitant]
     Active Substance: PALONOSETRON HYDROCHLORIDE
     Dosage: 0.25MG/5ML INTRAVENOUSLY DAILY INTERMITTENT OVER 20 MIN FOR 1 DAY IN NS 50ML
     Dates: start: 20130821, end: 20130821
  5. PALONOSETRON HCL [Concomitant]
     Active Substance: PALONOSETRON HYDROCHLORIDE
     Dosage: 0.25MG/5ML INTRAVENOUSLY DAILY INTERMITTENT OVER 20 MIN FOR 1 DAY IN NS 50ML
     Dates: start: 20131002, end: 20131002
  6. PEGFILGRASTIM [Concomitant]
     Active Substance: PEGFILGRASTIM
     Dosage: 6MG/0.6ML-6MG SUBCUTANEOUS FOR 1 DAY
     Dates: start: 20130822, end: 20130822
  7. HEPARIN LOCK FLUSH [Concomitant]
     Active Substance: HEPARIN SODIUM
     Dosage: 100 UNITS/ML-5ML INTRAVENOUS ONCE PUSH
     Dates: start: 20131002, end: 20131002
  8. DIPHENHYDRAMINE HYDROCHLORIDE. [Concomitant]
     Active Substance: DIPHENHYDRAMINE HYDROCHLORIDE
     Dosage: 10MG/ML- 50MG/ML, 50MG INTRAVENOUSLY DAILY; INTERMITTENT OVER 20 MIN FOR 1 DAY IN NS 50ML
     Dates: start: 20131002, end: 20131002
  9. PALONOSETRON HCL [Concomitant]
     Active Substance: PALONOSETRON HYDROCHLORIDE
     Dosage: 0.25MG/5ML INTRAVENOUSLY DAILY INTERMITTENT OVER 20 MIN FOR 1 DAY IN NS 50ML
     Dates: start: 20130911, end: 20130911
  10. MONTELUKAST [Concomitant]
     Active Substance: MONTELUKAST SODIUM
     Dates: start: 20090801
  11. NEOSAR [Concomitant]
     Active Substance: CYCLOPHOSPHAMIDE
     Dosage: 20MG/ML-996MG (AT 600MG/M2) INTRAVENOUSLY DAILY INTERMITTENT OVER 30 MIN FOR 1 DAY IN NS 250ML
     Dates: start: 20131002, end: 20131002
  12. DEXAMETHASONE SODIUM PHOSPHATE. [Concomitant]
     Active Substance: DEXAMETHASONE SODIUM PHOSPHATE
     Dosage: 10MG/ML- 10MG INTRAVENOUSLY DAILY; INTERMITTENT OVER 20 MIN FOR 1 DAY IN NS 50ML
     Dates: start: 20130821, end: 20130821
  13. DIPHENHYDRAMINE HYDROCHLORIDE. [Concomitant]
     Active Substance: DIPHENHYDRAMINE HYDROCHLORIDE
     Dosage: 10MG/ML- 50MG/ML, 50MG INTRAVENOUSLY DAILY; INTERMITTENT OVER 20 MIN FOR 1 DAY IN NS 50ML
     Dates: start: 20130911, end: 20130911
  14. PEGFILGRASTIM [Concomitant]
     Active Substance: PEGFILGRASTIM
     Dosage: 6MG/0.6ML-6MG SUBCUTANEOUS FOR 1 DAY
     Dates: start: 20130912, end: 20130912
  15. DOCETAXEL SAGENT [Suspect]
     Active Substance: DOCETAXEL
     Indication: BREAST CANCER FEMALE
     Dosage: DOSAGE: 125 MILLIGRAMS, NUMBER OF CYCLES: 04; EVERY THREE WEEKS
     Route: 065
     Dates: start: 20130731, end: 20131002
  16. DOCETAXEL ACTAVIS [Suspect]
     Active Substance: DOCETAXEL
     Dosage: DOSAGE: 125 MILLIGRAMS, NUMBER OF CYCLES: 04; EVERY THREE WEEKS
     Route: 065
     Dates: start: 20130731, end: 20131002
  17. NEOSAR [Concomitant]
     Active Substance: CYCLOPHOSPHAMIDE
     Indication: BREAST CANCER FEMALE
     Dosage: 20MG/ML-996MG (AT 600MG/M2) INTRAVENOUSLY DAILY INTERMITTENT OVER 30 MIN FOR 1 DAY IN NS 250ML
     Dates: start: 20130731, end: 20131002
  18. NEOSAR [Concomitant]
     Active Substance: CYCLOPHOSPHAMIDE
     Dosage: 20MG/ML-996MG (AT 600MG/M2) INTRAVENOUSLY DAILY INTERMITTENT OVER 30 MIN FOR 1 DAY IN NS 250ML
     Dates: start: 20130911, end: 20130911
  19. VENTOLIN [Concomitant]
     Active Substance: ALBUTEROL SULFATE
     Dates: start: 20090801
  20. SINGULAIR [Concomitant]
     Active Substance: MONTELUKAST SODIUM
     Dates: start: 20090801
  21. DIPHENHYDRAMINE HYDROCHLORIDE. [Concomitant]
     Active Substance: DIPHENHYDRAMINE HYDROCHLORIDE
     Dosage: 10MG/ML- 50MG/ML, 50MG INTRAVENOUSLY DAILY; INTERMITTENT OVER 20 MIN FOR 1 DAY IN NS 50ML
     Dates: start: 20130821, end: 20130821
  22. FAMOTIDINE. [Concomitant]
     Active Substance: FAMOTIDINE
     Dosage: IN NACL 20 MG/50ML-20MG INTRAVENOUSLY DAILY INTERMITTENT OVER 20 MINUTES FOR 1DAY IN NS 50ML
     Dates: start: 20130821, end: 20130821
  23. HEPARIN LOCK FLUSH [Concomitant]
     Active Substance: HEPARIN SODIUM
     Dosage: 100 UNITS/ML-5ML INTRAVENOUS ONCE PUSH
     Dates: start: 20130829, end: 20130829
  24. DEXAMETHASONE SODIUM PHOSPHATE. [Concomitant]
     Active Substance: DEXAMETHASONE SODIUM PHOSPHATE
     Dosage: 10MG/ML- 10MG INTRAVENOUSLY DAILY; INTERMITTENT OVER 20 MIN FOR 1 DAY IN NS 50ML
     Dates: start: 20131002, end: 20131002
  25. DOCETAXEL SAGENT [Suspect]
     Active Substance: DOCETAXEL
     Dosage: DOSAGE: 125 MILLIGRAMS, NUMBER OF CYCLES: 04; EVERY THREE WEEKS
     Route: 065
     Dates: start: 20130731, end: 20131002
  26. DOCETAXEL HOSPIRA [Suspect]
     Active Substance: DOCETAXEL
     Indication: BREAST CANCER FEMALE
     Dosage: DOSAGE: 125 MILLIGRAMS, NUMBER OF CYCLES: 04; EVERY THREE WEEKS
     Route: 065
     Dates: start: 20130731, end: 20131002
  27. DIPHENHYDRAMINE HYDROCHLORIDE. [Concomitant]
     Active Substance: DIPHENHYDRAMINE HYDROCHLORIDE
     Dosage: 10MG/ML- 50MG/ML, 50MG INTRAVENOUSLY DAILY; INTERMITTENT OVER 20 MIN FOR 1 DAY IN NS 50ML
     Dates: start: 20130731, end: 20130731
  28. HEPARIN LOCK FLUSH [Concomitant]
     Active Substance: HEPARIN SODIUM
     Dosage: 100 UNITS/ML-5ML INTRAVENOUS ONCE PUSH
     Dates: start: 20130911, end: 20130911
  29. HEPARIN LOCK FLUSH [Concomitant]
     Active Substance: HEPARIN SODIUM
     Dosage: 100 UNITS/ML-5ML INTRAVENOUS ONCE PUSH
     Dates: start: 20130919, end: 20130919
  30. DEXAMETHASONE SODIUM PHOSPHATE. [Concomitant]
     Active Substance: DEXAMETHASONE SODIUM PHOSPHATE
     Dosage: 10MG/ML- 10MG INTRAVENOUSLY DAILY; INTERMITTENT OVER 20 MIN FOR 1 DAY IN NS 50ML
     Dates: start: 20130911, end: 20130911
  31. FAMOTIDINE. [Concomitant]
     Active Substance: FAMOTIDINE
     Dosage: IN NACL 20 MG/50ML-20MG INTRAVENOUSLY DAILY INTERMITTENT OVER 20 MINUTES FOR 1DAY IN NS 50ML
     Dates: start: 20130911, end: 20130911
  32. PALONOSETRON HCL [Concomitant]
     Active Substance: PALONOSETRON HYDROCHLORIDE
     Dosage: 0.25MG/5ML INTRAVENOUSLY DAILY INTERMITTENT OVER 20 MIN FOR 1 DAY IN NS 50ML
     Dates: start: 20130731, end: 20130731
  33. PEGFILGRASTIM [Concomitant]
     Active Substance: PEGFILGRASTIM
     Dosage: 6MG/0.6ML-6MG SUBCUTANEOUS FOR 1 DAY
     Dates: start: 20130821, end: 20130821
  34. HEPARIN LOCK FLUSH [Concomitant]
     Active Substance: HEPARIN SODIUM
     Dosage: 100 UNITS/ML-5ML INTRAVENOUS ONCE PUSH
     Dates: start: 20130821, end: 20130821
  35. NEOSAR [Concomitant]
     Active Substance: CYCLOPHOSPHAMIDE
     Dosage: 20MG/ML-996MG (AT 600MG/M2) INTRAVENOUSLY DAILY INTERMITTENT OVER 30 MIN FOR 1 DAY IN NS 250ML
     Dates: start: 20130821, end: 20130821

REACTIONS (4)
  - Madarosis [Not Recovered/Not Resolved]
  - Hair texture abnormal [Not Recovered/Not Resolved]
  - Hair colour changes [Not Recovered/Not Resolved]
  - Alopecia [Not Recovered/Not Resolved]

NARRATIVE: CASE EVENT DATE: 20170909
